FAERS Safety Report 17202931 (Version 1)
Quarter: 2019Q4

REPORT INFORMATION
  Report Type: Spontaneous
  Country: US (occurrence: US)
  Receive Date: 20191226
  Receipt Date: 20191226
  Transmission Date: 20200122
  Serious: No
  Sender: FDA-Public Use
  Company Number: US-PFIZER INC-2019548031

PATIENT
  Age: 3 Month
  Sex: Male
  Weight: 6.8 kg

DRUGS (3)
  1. VITAMIN D [ERGOCALCIFEROL] [Concomitant]
     Active Substance: ERGOCALCIFEROL
     Indication: VITAMIN SUPPLEMENTATION
     Dosage: 1 ML, DAILY(1ML OF THE LIQUID FORM, BY MOUTH, DAILY)
     Route: 048
     Dates: start: 201909
  2. LEVOTHYROXINE SODIUM. [Suspect]
     Active Substance: LEVOTHYROXINE SODIUM
     Dosage: 112 UG, 1X/DAY
     Route: 063
  3. SERTRALINE [Suspect]
     Active Substance: SERTRALINE HYDROCHLORIDE
     Dosage: 25 MG (HALF OF A 50MG TABLET), 1X/DAY
     Route: 063
     Dates: start: 20191214

REACTIONS (4)
  - Condition aggravated [Not Recovered/Not Resolved]
  - Constipation [Not Recovered/Not Resolved]
  - Exposure via breast milk [Not Recovered/Not Resolved]
  - Grunting [Not Recovered/Not Resolved]

NARRATIVE: CASE EVENT DATE: 20191214
